FAERS Safety Report 6349801-3 (Version None)
Quarter: 2009Q3

REPORT INFORMATION
  Report Type: 
  Country: None (occurrence: None)
  Receive Date: 20090911
  Receipt Date: 20090902
  Transmission Date: 20100115
  Serious: Yes (Hospitalization)
  Sender: FDA-Public Use
  Company Number: CH-MERCK-0807CHE00006

PATIENT
  Age: 87 Year
  Sex: Female

DRUGS (7)
  1. FOSAMAX [Suspect]
     Indication: OSTEOPOROTIC FRACTURE
     Route: 048
     Dates: start: 20060201
  2. FOSAMAX [Suspect]
     Indication: OSTEOPOROSIS POSTMENOPAUSAL
     Route: 048
     Dates: start: 20060201
  3. PANTOPRAZOLE SODIUM [Suspect]
     Indication: GASTROOESOPHAGEAL REFLUX DISEASE
     Route: 048
  4. CALCIUM CARBONATE AND CHOLECALCIFEROL [Concomitant]
     Indication: OSTEOPOROSIS POSTMENOPAUSAL
     Route: 048
  5. OLMESARTAN MEDOXOMIL [Concomitant]
     Indication: ESSENTIAL HYPERTENSION
     Route: 048
  6. ACENOCOUMAROL [Concomitant]
     Indication: ATRIAL FIBRILLATION
     Route: 048
  7. ACENOCOUMAROL [Concomitant]
     Indication: ATRIAL FLUTTER
     Route: 048

REACTIONS (1)
  - FEMUR FRACTURE [None]
